FAERS Safety Report 8102930-6 (Version None)
Quarter: 2012Q1

REPORT INFORMATION
  Report Type: 
  Country: None (occurrence: None)
  Receive Date: 20120201
  Receipt Date: 20120130
  Transmission Date: 20120608
  Serious: Yes (Other)
  Sender: FDA-Public Use
  Company Number: PL-TEVA-319776ISR

PATIENT
  Sex: Male

DRUGS (1)
  1. FINAMEF [Suspect]
     Indication: BENIGN PROSTATIC HYPERPLASIA
     Dosage: 5 MILLIGRAM;
     Route: 048
     Dates: start: 20120123

REACTIONS (1)
  - EYE HAEMORRHAGE [None]
